FAERS Safety Report 12360153 (Version 1)
Quarter: 2016Q2

REPORT INFORMATION
  Report Type: Spontaneous
  Country: US (occurrence: US)
  Receive Date: 20160512
  Receipt Date: 20160512
  Transmission Date: 20160815
  Serious: Yes (Hospitalization, Other)
  Sender: FDA-Public Use
  Company Number: US-ALKERMES INC.-ALK-2016-001108

PATIENT
  Age: 35 Year
  Sex: Male
  Weight: 122.45 kg

DRUGS (1)
  1. VIVITROL [Suspect]
     Active Substance: NALTREXONE
     Indication: ALCOHOLISM
     Dosage: 380 MG, QMO
     Route: 030
     Dates: start: 20110815, end: 201201

REACTIONS (5)
  - Loss of consciousness [Recovered/Resolved]
  - Alcohol use [Unknown]
  - Alcoholism [Unknown]
  - Drug ineffective [Recovered/Resolved]
  - Dependence [Unknown]

NARRATIVE: CASE EVENT DATE: 201109
